FAERS Safety Report 16265585 (Version 2)
Quarter: 2019Q3

REPORT INFORMATION
  Report Type: Spontaneous
  Country: RU (occurrence: RU)
  Receive Date: 20190502
  Receipt Date: 20190806
  Transmission Date: 20191004
  Serious: Yes (Hospitalization, Other)
  Sender: FDA-Public Use
  Company Number: RU-BAYER-2019-084602

PATIENT
  Sex: Female
  Weight: 62 kg

DRUGS (2)
  1. MIRENA [Suspect]
     Active Substance: LEVONORGESTREL
     Indication: CONTRACEPTION
     Dosage: 20 MCG/24HR, CONT
     Route: 015
     Dates: start: 201901, end: 201904
  2. MIRENA [Suspect]
     Active Substance: LEVONORGESTREL
     Indication: CONTRACEPTION

REACTIONS (2)
  - Uterine leiomyoma [Recovered/Resolved]
  - Uterine haemorrhage [Recovered/Resolved]

NARRATIVE: CASE EVENT DATE: 201903
